FAERS Safety Report 7531070-X (Version None)
Quarter: 2011Q2

REPORT INFORMATION
  Report Type: 
  Country: None (occurrence: None)
  Receive Date: 20110608
  Receipt Date: 20110531
  Transmission Date: 20111010
  Serious: Yes (Other)
  Sender: FDA-Public Use
  Company Number: US-PERRIGO-11US004047

PATIENT
  Sex: Male
  Weight: 65.76 kg

DRUGS (4)
  1. RANITIDINE [Concomitant]
     Indication: GASTRIC DISORDER
     Dosage: 300 MG, QD
     Route: 048
     Dates: start: 20060101
  2. NITETIME FREE CHRY 6HR LIQ 041 [Suspect]
     Indication: NASOPHARYNGITIS
     Dosage: 30 ML, PRN
     Route: 048
     Dates: start: 20110429, end: 20110506
  3. PROPRANOLOL [Concomitant]
     Indication: TREMOR
     Dosage: 80 MG, QD
     Route: 048
     Dates: start: 20070101
  4. SIMVASTATIN [Concomitant]
     Indication: BLOOD CHOLESTEROL INCREASED
     Dosage: 80 MG, QD
     Route: 048
     Dates: start: 20000101

REACTIONS (4)
  - INCORRECT DOSE ADMINISTERED [None]
  - FALL [None]
  - CONFUSIONAL STATE [None]
  - DYSPNOEA [None]
